FAERS Safety Report 6822977-7 (Version None)
Quarter: 2010Q3

REPORT INFORMATION
  Report Type: 
  Country: None (occurrence: None)
  Receive Date: 20100708
  Receipt Date: 20100630
  Transmission Date: 20110219
  Serious: Yes (Death, Life-Threatening, Hospitalization, Disabling, Other)
  Sender: FDA-Public Use
  Company Number: A0868759A

PATIENT

DRUGS (1)
  1. ARIXTRA [Suspect]
     Dosage: 2.5MGD PER DAY
     Route: 065

REACTIONS (2)
  - THROMBOSIS [None]
  - THROMBOSIS IN DEVICE [None]
